FAERS Safety Report 21395532 (Version 1)
Quarter: 2022Q3

REPORT INFORMATION
  Report Type: Spontaneous
  Country: DE (occurrence: DE)
  Receive Date: 20220930
  Receipt Date: 20220930
  Transmission Date: 20221027
  Serious: Yes (Hospitalization)
  Sender: FDA-Public Use
  Company Number: DE-ADRED-07538-03

PATIENT
  Age: 72 Year
  Sex: Female
  Weight: 54 kg

DRUGS (9)
  1. RITUXIMAB [Suspect]
     Active Substance: RITUXIMAB
     Indication: Product used for unknown indication
     Dosage: 375 MG/M^, SCHEMA
     Route: 065
  2. BENDAMUSTINE [Suspect]
     Active Substance: BENDAMUSTINE
     Indication: Product used for unknown indication
     Dosage: 70 MG/M, SCHEMA
     Route: 065
  3. FERRO-SANOL DUODENAL [Concomitant]
     Active Substance: FERROUS GLYCINE SULFATE
     Dosage: 200 MG, SCHEMA
  4. SULFAMETHOXAZOLE\TRIMETHOPRIM [Concomitant]
     Active Substance: SULFAMETHOXAZOLE\TRIMETHOPRIM
     Dosage: 800|160 MG, SCHEMA
  5. CHOLECALCIFEROL [Concomitant]
     Active Substance: CHOLECALCIFEROL
     Dosage: 20000 IE / WOCHE, SCHEMA
  6. CALCIUMCARBONAT [Concomitant]
     Dosage: 500|400 IE, 1-0-0-0
  7. PANTOPRAZOLE SODIUM [Concomitant]
     Active Substance: PANTOPRAZOLE SODIUM
     Dosage: 20 MG, 1-0-0-0
  8. PEGFILGRASTIM [Concomitant]
     Active Substance: PEGFILGRASTIM
     Dosage: 6 MG, SCHEMA
  9. ENTECAVIR [Concomitant]
     Active Substance: ENTECAVIR
     Dosage: 0.5 MG, 0-0-1-0

REACTIONS (8)
  - Condition aggravated [Unknown]
  - Pyrexia [Unknown]
  - Chills [Unknown]
  - Anaemia [Unknown]
  - Tachypnoea [Unknown]
  - Tachycardia [Unknown]
  - Systemic infection [Unknown]
  - General physical health deterioration [Unknown]
